FAERS Safety Report 9621194 (Version 1)
Quarter: 2013Q4

REPORT INFORMATION
  Report Type: Spontaneous
  Country: US (occurrence: None)
  Receive Date: 20131011
  Receipt Date: 20131011
  Transmission Date: 20140711
  Serious: No
  Sender: FDA-Public Use
  Company Number: None

PATIENT
  Age: 50 Year
  Sex: Female
  Weight: 60.33 kg

DRUGS (2)
  1. VALSARTAN/HYDROCHLOROTHIAZIDE [Suspect]
     Indication: HYPERTENSION
     Route: 048
     Dates: start: 201302
  2. LIPITOR [Concomitant]

REACTIONS (8)
  - Migraine [None]
  - Visual impairment [None]
  - Muscle spasms [None]
  - Local swelling [None]
  - Dyspnoea [None]
  - Palpitations [None]
  - Blood pressure increased [None]
  - Product substitution issue [None]
